FAERS Safety Report 5104304-9 (Version None)
Quarter: 2006Q3

REPORT INFORMATION
  Report Type: 
  Country: None (occurrence: None)
  Receive Date: 20060912
  Receipt Date: 20060912
  Transmission Date: 20061208
  Serious: Yes (Other)
  Sender: FDA-Public Use
  Company Number: None

PATIENT
  Age: 29 Year
  Sex: Female
  Weight: 69.8539 kg

DRUGS (1)
  1. ERRIN [Suspect]
     Indication: CONTRACEPTION
     Dosage: 1 TABLET   1 PER DAY   PO
     Route: 048
     Dates: start: 20050808, end: 20050812

REACTIONS (3)
  - DEPRESSION [None]
  - INTENTIONAL SELF-INJURY [None]
  - SUICIDAL IDEATION [None]
